FAERS Safety Report 9205809 (Version 1)
Quarter: 2013Q2

REPORT INFORMATION
  Report Type: Spontaneous
  Country: GB (occurrence: None)
  Receive Date: 20130401
  Receipt Date: 20130401
  Transmission Date: 20140414
  Serious: Yes (Hospitalization)
  Sender: FDA-Public Use
  Company Number: AG-2013-0997

PATIENT
  Age: 69 Year
  Sex: Male
  Weight: 75.6 kg

DRUGS (11)
  1. CHLORAMBUCIL [Suspect]
     Indication: CHRONIC LYMPHOCYTIC LEUKAEMIA
     Route: 048
     Dates: start: 20120906, end: 20130311
  2. RIXUXIMAB [Suspect]
     Indication: CHRONIC LYMPHOCYTIC LEUKAEMIA
     Route: 042
     Dates: start: 20120906, end: 20130311
  3. SERETIDE [Concomitant]
  4. MOMETASONE [Concomitant]
  5. TERBINAFINE [Concomitant]
  6. CLARITHROMYCIN [Concomitant]
  7. CO-TRIMOXAZOLE [Concomitant]
  8. ACICLOVIR [Concomitant]
  9. FLEBOGAMMA [Concomitant]
  10. PREDNISOLONE [Concomitant]
  11. VENTOLIN [Concomitant]

REACTIONS (3)
  - Bronchitis [None]
  - Haemophilus test positive [None]
  - Productive cough [None]
